FAERS Safety Report 20153410 (Version 1)
Quarter: 2021Q4

REPORT INFORMATION
  Report Type: Other
  Country: None (occurrence: CA)
  Receive Date: 20211206
  Receipt Date: 20211206
  Transmission Date: 20220304
  Serious: Yes (Disabling, Other)
  Sender: FDA-Public Use
  Company Number: CA-MLMSERVICE-20211118-3208241-1

PATIENT
  Age: 35 Year
  Sex: Male

DRUGS (1)
  1. OXYGEN [Suspect]
     Active Substance: OXYGEN
     Indication: Post concussion syndrome
     Route: 055

REACTIONS (2)
  - Hereditary optic atrophy [Not Recovered/Not Resolved]
  - Blindness [Not Recovered/Not Resolved]
